FAERS Safety Report 7018928-5 (Version None)
Quarter: 2010Q3

REPORT INFORMATION
  Report Type: 
  Country: None (occurrence: None)
  Receive Date: 20100928
  Receipt Date: 20100914
  Transmission Date: 20110219
  Serious: Yes (Hospitalization)
  Sender: FDA-Public Use
  Company Number: DE-MYLANLABS-2010S1016775

PATIENT
  Age: 80 Year
  Sex: Male
  Weight: 69 kg

DRUGS (13)
  1. CIPROFLOXACIN [Suspect]
     Indication: URINARY TRACT INFECTION
     Route: 048
     Dates: start: 20100701, end: 20100703
  2. PANTOPRAZOLE SODIUM [Interacting]
     Indication: GASTRITIS
     Route: 048
  3. SIMVASTATIN [Concomitant]
     Indication: DYSLIPIDAEMIA
     Route: 048
  4. DIOVAN HCT [Concomitant]
     Indication: HYPERTENSION
     Dosage: 1 DF= 160MG VALSARTAN + 12,5MG HCT
     Route: 048
  5. METOPROLOL SUCCINATE [Concomitant]
     Indication: HYPERTENSION
     Route: 048
  6. DIGITOXIN [Concomitant]
     Indication: ATRIAL FIBRILLATION
     Route: 048
  7. ACETYLSALICYLIC ACID SRT [Concomitant]
     Indication: ISCHAEMIC HEART DISEASE PROPHYLAXIS
     Route: 048
  8. TORSEMIDE [Concomitant]
     Indication: HYPERTENSION
     Route: 048
  9. REKAWAN [Concomitant]
     Indication: HYPOKALAEMIA
     Route: 048
  10. XALATAN [Concomitant]
     Indication: GLAUCOMA
     Dosage: 1.5?G PRO AUGE
     Route: 057
  11. AZOPT [Concomitant]
     Indication: GLAUCOMA
     Dosage: 2X PRO TAG 0.5MG PRO AUGE
     Route: 057
  12. GLIBENCLAMID [Concomitant]
     Indication: TYPE 2 DIABETES MELLITUS
     Route: 048
  13. METFORMIN [Concomitant]
     Indication: TYPE 2 DIABETES MELLITUS
     Route: 048
     Dates: end: 20100703

REACTIONS (2)
  - CLOSTRIDIUM DIFFICILE COLITIS [None]
  - DRUG INTERACTION [None]
